FAERS Safety Report 8942497 (Version 2)
Quarter: 2013Q2

REPORT INFORMATION
  Report Type: Spontaneous
  Country: GB (occurrence: None)
  Receive Date: 20121121
  Receipt Date: 20130401
  Transmission Date: 20140414
  Serious: Yes (Death)
  Sender: FDA-Public Use
  Company Number: 1483377

PATIENT
  Age: 70 Year
  Sex: Female
  Weight: 20.41 kg

DRUGS (6)
  1. GEMCITABINE HYDROCHLORIDE [Suspect]
     Indication: PANCREATIC CARCINOMA METASTATIC
     Dosage: 1000 MG/M2 MILLIGRAM (S)/SQ. METER,
     Route: 042
     Dates: start: 20120815, end: 20120912
  2. DEXAMETHASONE [Concomitant]
  3. LANSOPRAZOLE [Concomitant]
  4. ALENDRONATE [Concomitant]
  5. AMITRIPTYLINE [Concomitant]
  6. CHOLECALCIFEROL [Concomitant]

REACTIONS (2)
  - Pneumonitis [None]
  - Dyspnoea [None]
